FAERS Safety Report 10416762 (Version 1)
Quarter: 2014Q3

REPORT INFORMATION
  Report Type: Spontaneous
  Country: US (occurrence: US)
  Receive Date: 20140828
  Receipt Date: 20140828
  Transmission Date: 20150326
  Serious: No
  Sender: FDA-Public Use
  Company Number: US-GILEAD-2014-0112811

PATIENT
  Age: 67 Year
  Sex: Female
  Weight: 68.27 kg

DRUGS (4)
  1. OLYSIO [Suspect]
     Active Substance: SIMEPREVIR
     Indication: HEPATITIS C
     Dosage: 150 MG, QD
     Route: 048
     Dates: start: 20140707, end: 20140722
  2. OLYSIO [Suspect]
     Active Substance: SIMEPREVIR
     Dosage: 300 MG, TOTAL
     Route: 048
     Dates: start: 20140723, end: 20140723
  3. SOVALDI [Suspect]
     Active Substance: SOFOSBUVIR
     Dosage: 2 DF, TOTAL
     Route: 048
     Dates: start: 20140723, end: 20140723
  4. SOVALDI [Suspect]
     Active Substance: SOFOSBUVIR
     Indication: HEPATITIS C
     Dosage: UNK
     Route: 048
     Dates: start: 20140707, end: 20140722

REACTIONS (2)
  - Off label use [Not Recovered/Not Resolved]
  - Accidental overdose [Recovered/Resolved]

NARRATIVE: CASE EVENT DATE: 20140707
